FAERS Safety Report 18693833 (Version 2)
Quarter: 2021Q2

REPORT INFORMATION
  Report Type: Spontaneous
  Country: CA (occurrence: CA)
  Receive Date: 20210104
  Receipt Date: 20210622
  Transmission Date: 20210717
  Serious: Yes (Other)
  Sender: FDA-Public Use
  Company Number: CA-SA-2020SA376787

PATIENT
  Sex: Female

DRUGS (6)
  1. LEFLUNOMIDE. [Suspect]
     Active Substance: LEFLUNOMIDE
     Indication: PSORIATIC ARTHROPATHY
     Route: 065
  2. HYDROXYCHLOROQUINE [Suspect]
     Active Substance: HYDROXYCHLOROQUINE
     Indication: PSORIATIC ARTHROPATHY
     Dosage: 400 MG, QD
     Route: 065
  3. COSENTYX [Suspect]
     Active Substance: SECUKINUMAB
     Indication: PSORIATIC ARTHROPATHY
     Dosage: 300 MG, QM
     Route: 065
  4. METHOTREXATE. [Suspect]
     Active Substance: METHOTREXATE
     Indication: PRODUCT USED FOR UNKNOWN INDICATION
     Dosage: 25 MG, QW
     Route: 058
  5. AZATHIOPRINE. [Suspect]
     Active Substance: AZATHIOPRINE
     Indication: PSORIATIC ARTHROPATHY
     Route: 065
  6. PREDNISONE. [Concomitant]
     Active Substance: PREDNISONE
     Indication: PRODUCT USED FOR UNKNOWN INDICATION
     Dosage: 10 MG, QD
     Route: 048

REACTIONS (10)
  - Joint stiffness [Unknown]
  - Psoriatic arthropathy [Unknown]
  - C-reactive protein increased [Unknown]
  - Dactylitis [Unknown]
  - Tenosynovitis [Unknown]
  - Enthesopathy [Unknown]
  - Vertigo [Unknown]
  - Psoriasis [Unknown]
  - Drug ineffective [Unknown]
  - Inflammation [Unknown]

NARRATIVE: CASE EVENT DATE: 2018
